FAERS Safety Report 19266303 (Version 1)
Quarter: 2021Q2

REPORT INFORMATION
  Report Type: Spontaneous
  Country: US (occurrence: US)
  Receive Date: 20210517
  Receipt Date: 20210517
  Transmission Date: 20210717
  Serious: Yes (Life-Threatening)
  Sender: FDA-Public Use
  Company Number: US-BAYER-2021-140448

PATIENT
  Age: 75 Year
  Sex: Female

DRUGS (6)
  1. AZULFIDINE [Concomitant]
     Active Substance: SULFASALAZINE
     Dosage: 1000 MG, BID
  2. PFIZER?BIONTECH COVID?19 VACCINE [Concomitant]
     Active Substance: TOZINAMERAN
     Indication: COVID-19
     Dosage: UNK FISRT SHOT
     Dates: start: 20210419
  3. PREDNISONE. [Concomitant]
     Active Substance: PREDNISONE
     Indication: RHEUMATOID ARTHRITIS
     Dosage: 10 MG
  4. BAYER ASPIRIN [Suspect]
     Active Substance: ASPIRIN
     Indication: RHEUMATOID ARTHRITIS
     Dosage: 8 DF
  5. ORENCIA [Concomitant]
     Active Substance: ABATACEPT
     Dosage: UNK UNK, Q4WK
  6. BAYER ASPIRIN [Suspect]
     Active Substance: ASPIRIN
     Indication: RHEUMATOID ARTHRITIS
     Dosage: 325 MG, QD

REACTIONS (5)
  - Visual impairment [None]
  - COVID-19 [None]
  - Product use in unapproved indication [None]
  - Drug effective for unapproved indication [Unknown]
  - Cardiovascular disorder [None]
